FAERS Safety Report 6698428-2 (Version None)
Quarter: 2010Q2

REPORT INFORMATION
  Report Type: 
  Country: None (occurrence: None)
  Receive Date: 20100427
  Receipt Date: 20100419
  Transmission Date: 20101027
  Serious: Yes (Life-Threatening, Hospitalization)
  Sender: FDA-Public Use
  Company Number: FR-ROCHE-698652

PATIENT
  Sex: Male

DRUGS (4)
  1. AVASTIN [Suspect]
     Indication: GLIOBLASTOMA
     Dosage: DOSE:15 MG/ KG, FORM: DRIP SOLUTION, NO RECHALLENGE WAS PERFORMED.
     Route: 042
     Dates: start: 20090301, end: 20100202
  2. TEMODAL [Concomitant]
     Indication: GLIOBLASTOMA
     Dosage: FREQUENCY: FOR 5 DAYS EVERY 21 DAYS. DOSE: 110 MG/M2 EITHER 200 MG/ DAY FOR 5 DAYS
     Route: 048
     Dates: start: 20090301, end: 20100202
  3. BICNU [Concomitant]
     Indication: GLIOBLASTOMA
     Dosage: FORM: POWDER AND SOLVENT FOR DRIP SOLUTION. DOSE: 150 MG/M2 EITHER 280 MG
     Route: 042
     Dates: start: 20090301, end: 20100202
  4. LASIX [Concomitant]
     Route: 015

REACTIONS (2)
  - HAEMOLYTIC URAEMIC SYNDROME [None]
  - MENINGISM [None]
